FAERS Safety Report 20255326 (Version 1)
Quarter: 2021Q4

REPORT INFORMATION
  Report Type: Spontaneous
  Country: DE (occurrence: DE)
  Receive Date: 20211230
  Receipt Date: 20211230
  Transmission Date: 20220303
  Serious: Yes (Hospitalization)
  Sender: FDA-Public Use
  Company Number: DE-ADRED-06940-01

PATIENT
  Age: 68 Year
  Sex: Female

DRUGS (14)
  1. DOCETAXEL [Suspect]
     Active Substance: DOCETAXEL
     Dosage: 75 MG, ON MAY NINETEENTH
     Route: 042
  2. DOCETAXEL [Suspect]
     Active Substance: DOCETAXEL
     Dosage: PAUSED ON JUNE 9TH DUE TO SIDE EFFECTS
     Route: 042
  3. TRASTUZUMAB [Suspect]
     Active Substance: TRASTUZUMAB
     Dosage: 515 MG, ON JUNE 9TH
     Route: 042
  4. TRASTUZUMAB [Suspect]
     Active Substance: TRASTUZUMAB
     Dosage: 670 MG, ON THE NINETEENTH MAY
     Route: 042
  5. PERTUZUMAB [Suspect]
     Active Substance: PERTUZUMAB
     Dosage: 840 MG, ON THE NINETEENTH MAY
     Route: 042
  6. PERTUZUMAB [Suspect]
     Active Substance: PERTUZUMAB
     Dosage: 420 MG, ON JUNE 9TH
     Route: 042
  7. PREGABALIN [Concomitant]
     Active Substance: PREGABALIN
     Dosage: 25 MILLIGRAM DAILY;  0-0-1-0
     Route: 048
  8. CHOLECALCIFEROL [Concomitant]
     Active Substance: CHOLECALCIFEROL
     Dosage: 1000 IU (INTERNATIONAL UNIT) DAILY; 1000 IU, 1-0-0-0, CAPSULES, COLECALCIFEROL (VITAMIN D)
     Route: 048
  9. FENTANYL [Concomitant]
     Active Substance: FENTANYL
     Dosage: 0.2 MG, UP TO THREE TIMES A DAY IF NECESSARY
     Route: 060
  10. NALOXONE HYDROCHLORIDE\OXYCODONE HYDROCHLORIDE [Concomitant]
     Active Substance: NALOXONE HYDROCHLORIDE\OXYCODONE HYDROCHLORIDE
     Dosage: 5 | 10 MG, 1-0-2-0, SUSTAINED-RELEASE CAPSULES
     Route: 048
  11. METAMIZOL [Concomitant]
     Active Substance: METAMIZOLE SODIUM
     Dosage: 2000 MILLIGRAM DAILY; 1-1-1-1
     Route: 048
  12. ZOLEDRONIC ACID [Concomitant]
     Active Substance: ZOLEDRONIC ACID
     Dosage: 4 MG, EVERY THREE TO FOUR WEEKS
     Route: 042
  13. DEXAMETHASONE [Concomitant]
     Active Substance: DEXAMETHASONE
     Dosage: 8 MILLIGRAM DAILY; 1-0-1-0
     Route: 048
  14. PANTOPRAZOLE SODIUM [Concomitant]
     Active Substance: PANTOPRAZOLE SODIUM
     Dosage: 40 MILLIGRAM DAILY; 1-0-0-0
     Route: 048

REACTIONS (3)
  - Oesophageal pain [Unknown]
  - Vomiting [Unknown]
  - Dysphagia [Unknown]
